FAERS Safety Report 18414126 (Version 1)
Quarter: 2020Q4

REPORT INFORMATION
  Report Type: Spontaneous
  Country: NL (occurrence: NL)
  Receive Date: 20201022
  Receipt Date: 20201022
  Transmission Date: 20210114
  Serious: Yes (Hospitalization)
  Sender: FDA-Public Use
  Company Number: NL-ACCORD-205865

PATIENT
  Sex: Female
  Weight: 90 kg

DRUGS (7)
  1. PARACETAMOL [Concomitant]
     Active Substance: ACETAMINOPHEN
     Dosage: 1000 MG, STRENGTH:1000 MG, BRAND NAME NOT SPECIFIED
  2. AMITRIPTYLINE [Suspect]
     Active Substance: AMITRIPTYLINE
     Indication: NEURALGIA
     Dosage: 1 X 3 PIECES, STRENGTH: 10 MG, BRAND NAME NOT SPECIFIED, MEDICATION PRESCRIBED BY DOCTOR: YES
     Dates: start: 20200911, end: 20201008
  3. CLONAZEPAM. [Concomitant]
     Active Substance: CLONAZEPAM
     Dosage: 0.5 MG, STRENGTH: 0.5 MG, BRAND NAME NOT SPECIFIED
  4. WELLBUTRIN [Concomitant]
     Active Substance: BUPROPION HYDROCHLORIDE
     Dosage: 300 MG, BUPROPION TABLET MGA, STRENGTH:300 MG
  5. AMITRIPTYLINE [Suspect]
     Active Substance: AMITRIPTYLINE
     Indication: NEURALGIA
     Dosage: 1X10 MG, STRENGTH: 10 MG, BRAND NAME NOT SPECIFIED, MEDICATION PRESCRIBED BY DOCTOR: YES
  6. OMEPRAZOLE. [Concomitant]
     Active Substance: OMEPRAZOLE
     Dosage: 20 MG, OMEPRAZOLE CAPSULE MSR, STRENGTH:20 MG, BRAND NAME NOT SPECIFIED
  7. GABAPENTIN. [Concomitant]
     Active Substance: GABAPENTIN
     Dosage: 300 MG, STRENGTH: 300 MG, BRAND NAME NOT SPECIFIED

REACTIONS (4)
  - Dyspepsia [Recovering/Resolving]
  - Abdominal pain [Recovering/Resolving]
  - Nausea [Recovering/Resolving]
  - Decreased appetite [Recovering/Resolving]
